FAERS Safety Report 24299009 (Version 1)
Quarter: 2024Q3

REPORT INFORMATION
  Report Type: Spontaneous
  Country: CN (occurrence: CN)
  Receive Date: 20240909
  Receipt Date: 20240909
  Transmission Date: 20241017
  Serious: Yes (Other)
  Sender: FRESENIUS KABI
  Company Number: CN-FreseniusKabi-FK202413475

PATIENT
  Age: 71 Year
  Sex: Female

DRUGS (1)
  1. KABIVEN [Suspect]
     Active Substance: ALANINE\ARGININE\ASPARTIC ACID\CALCIUM CHLORIDE\DEXTROSE MONOHYDRATE\GLUTAMIC ACID\GLYCINE\HISTIDINE
     Indication: Nutritional supplementation
     Dosage: FORM OF ADMIN: INJECTION
     Route: 041
     Dates: start: 20240827, end: 20240901

REACTIONS (2)
  - Chills [Recovering/Resolving]
  - Feeling cold [Recovering/Resolving]

NARRATIVE: CASE EVENT DATE: 20240901
